FAERS Safety Report 21702017 (Version 1)
Quarter: 2022Q4

REPORT INFORMATION
  Report Type: Spontaneous
  Country: CN (occurrence: CN)
  Receive Date: 20221208
  Receipt Date: 20221208
  Transmission Date: 20230113
  Serious: Yes (Hospitalization)
  Sender: FDA-Public Use
  Company Number: CN-009507513-2212CHN002538

PATIENT
  Age: 72 Year
  Sex: Male
  Weight: 62.5 kg

DRUGS (6)
  1. KEYTRUDA [Suspect]
     Active Substance: PEMBROLIZUMAB
     Indication: Hypopharyngeal cancer
     Dosage: 475 MG (ALSO REPORTED AS 200 MG), ONCE, IV DRIP
     Route: 041
     Dates: start: 20221012, end: 20221012
  2. KEYTRUDA [Suspect]
     Active Substance: PEMBROLIZUMAB
     Dosage: UNK
     Dates: start: 20221101, end: 20221101
  3. PACLITAXEL [Suspect]
     Active Substance: PACLITAXEL
     Indication: Hypopharyngeal cancer
     Dosage: 210 MG (ALSO REPORTED AS 400 MG), ONCE, IV DRIP
     Route: 041
     Dates: start: 20221012, end: 20221012
  4. PACLITAXEL [Suspect]
     Active Substance: PACLITAXEL
     Dosage: UNK
     Dates: start: 20221101, end: 20221101
  5. CISPLATIN [Suspect]
     Active Substance: CISPLATIN
     Indication: Hypopharyngeal cancer
     Dosage: 75 MG (ALSO REPORTED AS 65 MG), ONCE, IV DRIP
     Route: 041
     Dates: start: 20221012, end: 20221012
  6. CISPLATIN [Suspect]
     Active Substance: CISPLATIN
     Dosage: UNK
     Dates: start: 20221101, end: 20221101

REACTIONS (3)
  - Hypoaesthesia [Not Recovered/Not Resolved]
  - Overdose [Unknown]
  - Product use issue [Unknown]

NARRATIVE: CASE EVENT DATE: 20221012
